FAERS Safety Report 14289787 (Version 1)
Quarter: 2017Q4

REPORT INFORMATION
  Report Type: Spontaneous
  Country: TR (occurrence: TR)
  Receive Date: 20171215
  Receipt Date: 20171215
  Transmission Date: 20180321
  Serious: Yes (Life-Threatening, Hospitalization, Other)
  Sender: FDA-Public Use
  Company Number: TR-CIPLA LTD.-2017TR18201

PATIENT

DRUGS (12)
  1. IRINOTECAN [Suspect]
     Active Substance: IRINOTECAN
     Indication: RECTAL CANCER METASTATIC
     Dosage: 180 MG/M2, ON DAY 1, EVERY TWO WEEKS, 6 CYCLES
     Route: 065
  2. LEUCOVORIN. [Suspect]
     Active Substance: LEUCOVORIN
     Dosage: 400 MG/M2, ON DAY 1, EVERY TWO WEEKS, 12 CYCLES, FOLFOX
     Route: 065
  3. LEUCOVORIN. [Suspect]
     Active Substance: LEUCOVORIN
     Indication: RECTAL CANCER METASTATIC
     Dosage: 400 MG/M2, ON DAY 1, EVERY TWO WEEKS, 12 CYCLES, FOLFIRI
     Route: 065
  4. OXALIPLATIN. [Suspect]
     Active Substance: OXALIPLATIN
     Dosage: 85 MG/M2, DAY 1, EVERY TWO WEEKS, 8 CYCLES, MAINTAINANCE
  5. FLUOROURACIL. [Suspect]
     Active Substance: FLUOROURACIL
     Dosage: 400 MG/M2, ON DAY 1, EVERY TWO WEEKS, 12 CYCLES, FOLFOX
     Route: 040
  6. CETUXIMAB. [Concomitant]
     Active Substance: CETUXIMAB
     Dosage: 500 MG/M2, ON DAY 1, EVERY TWO WEEKS, 8 CYCLES, MAINTAINANCE
     Route: 065
  7. FLUOROURACIL. [Suspect]
     Active Substance: FLUOROURACIL
     Dosage: 2400 MG/M2, ON DAY 1 INFUSED OVER 46  HOURS, EVERY TWO WEEKS, FOLFIRI
  8. FLUOROURACIL. [Suspect]
     Active Substance: FLUOROURACIL
     Dosage: 2400 MG/M2, ON DAY 1 INFUSED OVER 46  HOURS, EVERY TWO WEEKS 12 CYCLES, FOLFOX, 12 CYCLES, FOLFOX
  9. CETUXIMAB. [Concomitant]
     Active Substance: CETUXIMAB
     Indication: RECTAL CANCER METASTATIC
     Dosage: 500 MG/M2, ON DAY 1, EVERY TWO WEEKS, 12 CYCLES
     Route: 065
  10. FLUOROURACIL. [Suspect]
     Active Substance: FLUOROURACIL
     Indication: RECTAL CANCER METASTATIC
     Dosage: 400 MG/M2, ON DAY 1, EVERY TWO WEEKS, FOLFIRI
     Route: 040
  11. BEVACIZUMAB. [Suspect]
     Active Substance: BEVACIZUMAB
     Indication: RECTAL CANCER METASTATIC
     Dosage: 5 MG/KG,ON DAY 1
     Route: 065
  12. OXALIPLATIN. [Suspect]
     Active Substance: OXALIPLATIN
     Indication: RECTAL CANCER METASTATIC
     Dosage: 85 MG/M2, DAY 1, EVERY TWO WEEKS, 12 CYCLES, FOLFOX

REACTIONS (6)
  - Gastrointestinal haemorrhage [Recovered/Resolved]
  - Petechiae [Unknown]
  - Disease progression [Unknown]
  - Treatment failure [Unknown]
  - Thrombocytopenia [Recovered/Resolved]
  - Epistaxis [Unknown]
